FAERS Safety Report 8885230 (Version 1)
Quarter: 2012Q4

REPORT INFORMATION
  Report Type: 
  Country: KR (occurrence: KR)
  Receive Date: 20121101
  Receipt Date: 20121101
  Transmission Date: 20130627
  Serious: Yes (Other)
  Sender: FDA-Public Use
  Company Number: KR-ROCHE-1150589

PATIENT
  Age: 50 Year
  Sex: Female

DRUGS (2)
  1. CAPECITABINE [Suspect]
     Indication: COLON CANCER
     Dosage: 4 cycles
     Route: 065
  2. CAPECITABINE [Suspect]
     Route: 065

REACTIONS (1)
  - Sarcoidosis [Recovered/Resolved]
